FAERS Safety Report 8187579-1 (Version None)
Quarter: 2012Q1

REPORT INFORMATION
  Report Type: 
  Country: None (occurrence: None)
  Receive Date: 20120306
  Receipt Date: 20120222
  Transmission Date: 20120608
  Serious: Yes (Hospitalization)
  Sender: FDA-Public Use
  Company Number: IT-ELI_LILLY_AND_COMPANY-IT201202001014

PATIENT
  Sex: Female

DRUGS (11)
  1. TOPAMAX [Concomitant]
     Dosage: 1 DF, QD
     Route: 048
     Dates: start: 20110201, end: 20110711
  2. EUTIROX                            /00068002/ [Concomitant]
     Indication: HYPOTHYROIDISM
     Dosage: 25 UG, UNK
  3. NEBIVOLOL HCL [Concomitant]
     Dosage: 5 MG, UNK
  4. ESOPRAL [Concomitant]
  5. ZOLOFT [Concomitant]
     Indication: DEPRESSION
     Dosage: 1 DF, QD
     Route: 048
     Dates: start: 20110201, end: 20110711
  6. CLONAZEPAM [Concomitant]
     Dosage: 15 GTT, QD
     Route: 048
     Dates: start: 20060117, end: 20110711
  7. NALOXONE [Concomitant]
     Indication: RADICULOPATHY
     Dosage: 2 DF, QD
     Route: 048
     Dates: start: 20110201, end: 20110711
  8. FUROSEMIDE                         /00032601/ [Concomitant]
  9. PRAMIPEXOLE DIHYDROCHLORIDE [Concomitant]
     Indication: RESTLESS LEGS SYNDROME
     Dosage: 3 DF, QD
     Route: 048
     Dates: start: 20070429, end: 20110716
  10. DULOXETINE HYDROCHLORIDE [Suspect]
     Dosage: 60 MG, QD
     Route: 048
     Dates: start: 20110201, end: 20110711
  11. COUMADIN [Concomitant]
     Indication: ATRIAL FIBRILLATION
     Dosage: 5 MG, UNK

REACTIONS (3)
  - BRADYPHRENIA [None]
  - CONFUSIONAL STATE [None]
  - BRADYKINESIA [None]
